FAERS Safety Report 6164046-8 (Version None)
Quarter: 2009Q2

REPORT INFORMATION
  Report Type: 
  Country: None (occurrence: None)
  Receive Date: 20090422
  Receipt Date: 20090417
  Transmission Date: 20091009
  Serious: Yes (Other)
  Sender: FDA-Public Use
  Company Number: US-KINGPHARMUSA00001-K200900457

PATIENT
  Sex: Male
  Weight: 82 kg

DRUGS (12)
  1. ALTACE [Suspect]
     Indication: HYPERTENSION
     Dosage: 5 MG, QD
     Dates: start: 20090320
  2. AMLODIPINE [Concomitant]
  3. CALCICHEW D3 [Concomitant]
  4. DORZOLAMIDE [Concomitant]
  5. LORATADINE [Concomitant]
  6. PREDNISOLONE [Concomitant]
  7. SIMVASTATIN [Concomitant]
  8. SOTALOL HCL [Concomitant]
  9. TAMSULOSIN HCL [Concomitant]
  10. TIMOLOL MALEATE [Concomitant]
  11. WARFARIN SODIUM [Concomitant]
  12. LATANOPROST [Concomitant]

REACTIONS (2)
  - BLOOD PRESSURE INCREASED [None]
  - DRUG INEFFECTIVE [None]
